FAERS Safety Report 4687561-2 (Version None)
Quarter: 2005Q2

REPORT INFORMATION
  Report Type: 
  Country: None (occurrence: None)
  Receive Date: 20050311
  Receipt Date: 20050311
  Transmission Date: 20051028
  Serious: No
  Sender: FDA-Public Use
  Company Number: None

PATIENT
  Age: 24 Year
  Sex: Male

DRUGS (2)
  1. TEGRETOL (GENERIC) 200MG ONE PO BID [Suspect]
  2. DEPAKOTE (GENERIC) 500MG TWO PO BID [Suspect]

REACTIONS (2)
  - CONDITION AGGRAVATED [None]
  - CONVULSION [None]
